FAERS Safety Report 6036179-8 (Version None)
Quarter: 2009Q1

REPORT INFORMATION
  Report Type: 
  Country: None (occurrence: None)
  Receive Date: 20090113
  Receipt Date: 20090108
  Transmission Date: 20090719
  Serious: Yes (Hospitalization, Other)
  Sender: FDA-Public Use
  Company Number: US-PFIZER INC-2008048134

PATIENT
  Sex: Female
  Weight: 68.04 kg

DRUGS (13)
  1. BLINDED *PLACEBO [Suspect]
     Indication: OSTEOARTHRITIS
     Dosage: UNK
     Route: 048
     Dates: start: 20071128, end: 20080602
  2. BLINDED CELECOXIB [Suspect]
     Indication: OSTEOARTHRITIS
     Dosage: UNK
     Route: 048
     Dates: start: 20071128, end: 20080602
  3. IBUPROFEN TABLETS [Suspect]
     Indication: OSTEOARTHRITIS
     Dosage: UNK
     Route: 048
     Dates: start: 20071128, end: 20080602
  4. NAPROXEN [Suspect]
     Indication: OSTEOARTHRITIS
     Dosage: UNK
     Route: 048
     Dates: start: 20071128, end: 20080602
  5. NEXIUM [Concomitant]
     Dosage: 20 MG, 1X/DAY
     Route: 048
     Dates: start: 20071128, end: 20080601
  6. IRBESARTAN [Concomitant]
     Dosage: QD
     Route: 048
     Dates: start: 20051117
  7. AMLODIPINE [Concomitant]
     Dosage: QD
     Route: 048
     Dates: start: 20051117
  8. PAROXETINE HCL [Concomitant]
     Dosage: QD
     Route: 048
     Dates: start: 20051117
  9. LEVOTHYROXINE SODIUM [Concomitant]
     Dosage: QD
     Route: 048
     Dates: start: 20051117
  10. SIMVASTATIN [Concomitant]
     Dosage: QD
     Route: 048
     Dates: start: 20051117
  11. CONJUGATED ESTROGENS [Concomitant]
     Dosage: 0.625 MG, 1X/DAY
     Route: 048
     Dates: start: 20061101
  12. KEFLEX [Concomitant]
     Dosage: QD
     Route: 048
     Dates: start: 20080602, end: 20080604
  13. LORTAB [Concomitant]
     Dosage: 7.5/500 MG,PRN
     Route: 048
     Dates: start: 20080602

REACTIONS (2)
  - DRUG HYPERSENSITIVITY [None]
  - FOLLICLE CENTRE LYMPHOMA, FOLLICULAR GRADE I, II, III [None]
